FAERS Safety Report 15533515 (Version 2)
Quarter: 2018Q4

REPORT INFORMATION
  Report Type: Spontaneous
  Country: JP (occurrence: JP)
  Receive Date: 20181019
  Receipt Date: 20181029
  Transmission Date: 20190205
  Serious: Yes (Hospitalization, Other)
  Sender: FDA-Public Use
  Company Number: JP-B.I. PHARMACEUTICALS,INC./RIDGEFIELD-2018-NB-004972

PATIENT
  Age: 7 Decade
  Sex: Female

DRUGS (3)
  1. GILOTRIF [Suspect]
     Active Substance: AFATINIB
     Indication: LUNG NEOPLASM MALIGNANT
     Route: 065
  2. DENOSUMAB(GENETICAL RECOMBINATION) [Concomitant]
     Indication: LUNG NEOPLASM MALIGNANT
     Route: 065
  3. ERLOTINIB HYDROCHLORIDE. [Concomitant]
     Active Substance: ERLOTINIB HYDROCHLORIDE
     Indication: LUNG NEOPLASM MALIGNANT
     Route: 065

REACTIONS (4)
  - Enterocolitis [Recovering/Resolving]
  - Diarrhoea [Unknown]
  - Rectal lesion excision [Unknown]
  - Haematochezia [Unknown]
